FAERS Safety Report 12999849 (Version 3)
Quarter: 2017Q2

REPORT INFORMATION
  Report Type: Report from Study
  Country: JP (occurrence: JP)
  Receive Date: 20161205
  Receipt Date: 20170428
  Transmission Date: 20170830
  Serious: Yes (Death, Life-Threatening, Hospitalization)
  Sender: FDA-Public Use
  Company Number: JP-SA-2016SA220554

PATIENT
  Age: 59 Year
  Sex: Male

DRUGS (44)
  1. EVOLTRA [Suspect]
     Active Substance: CLOFARABINE
     Indication: ACUTE LYMPHOCYTIC LEUKAEMIA
     Route: 042
     Dates: start: 20160130, end: 20160203
  2. GRAN [Concomitant]
     Active Substance: FILGRASTIM
     Route: 058
     Dates: start: 20160204
  3. RANITIDINE. [Concomitant]
     Active Substance: RANITIDINE
     Route: 048
     Dates: end: 20160317
  4. GLIMEPIRIDE. [Concomitant]
     Active Substance: GLIMEPIRIDE
     Dosage: 0.5-1 MG
     Route: 048
     Dates: end: 20160317
  5. VALIXA [Concomitant]
     Active Substance: VALGANCICLOVIR
     Dosage: DOSE: 400
     Route: 048
     Dates: start: 20160302, end: 20160315
  6. FUNGUARD [Concomitant]
     Active Substance: MICAFUNGIN SODIUM
     Route: 042
     Dates: start: 20160107, end: 20160120
  7. TSUMURA DAIKENCHUTO EXTRACT GRANULES [Concomitant]
     Active Substance: HERBALS
     Dates: end: 20160112
  8. BACTRAMIN [Concomitant]
     Active Substance: SULFAMETHOXAZOLE\TRIMETHOPRIM
     Route: 048
     Dates: start: 20151216, end: 20151230
  9. BENAMBAX [Concomitant]
     Active Substance: PENTAMIDINE
     Route: 055
     Dates: start: 20160117
  10. VALIXA [Concomitant]
     Active Substance: VALGANCICLOVIR
     Dosage: DOSE: 400
     Route: 048
     Dates: start: 20160119, end: 20160130
  11. MAXIPIME [Concomitant]
     Active Substance: CEFEPIME HYDROCHLORIDE
     Route: 042
     Dates: start: 20160207, end: 20160220
  12. MAXIPIME [Concomitant]
     Active Substance: CEFEPIME HYDROCHLORIDE
     Route: 042
     Dates: start: 20160313
  13. MEROPENEM. [Concomitant]
     Active Substance: MEROPENEM
     Route: 042
     Dates: start: 20151217, end: 20151230
  14. ZYVOX [Concomitant]
     Active Substance: LINEZOLID
     Route: 042
     Dates: start: 20160207, end: 20160223
  15. FUNGUARD [Concomitant]
     Active Substance: MICAFUNGIN SODIUM
     Route: 042
     Dates: start: 20160120, end: 20160302
  16. AMBISOME [Suspect]
     Active Substance: AMPHOTERICIN B
     Route: 042
     Dates: start: 20160313
  17. CICLOSPORIN [Suspect]
     Active Substance: CYCLOSPORINE
     Indication: HISTIOCYTOSIS HAEMATOPHAGIC
     Route: 048
     Dates: start: 20160317, end: 20160322
  18. ETOPOSIDE. [Suspect]
     Active Substance: ETOPOSIDE
     Indication: HISTIOCYTOSIS HAEMATOPHAGIC
     Route: 048
     Dates: start: 20160317, end: 20160318
  19. ETOPOSIDE. [Suspect]
     Active Substance: ETOPOSIDE
     Indication: ACUTE LYMPHOCYTIC LEUKAEMIA
     Route: 048
     Dates: start: 20160317, end: 20160318
  20. ZOVIRAX [Concomitant]
     Active Substance: ACYCLOVIR
     Route: 048
  21. ZYVOX [Concomitant]
     Active Substance: LINEZOLID
     Route: 042
     Dates: start: 20160101, end: 20160106
  22. URSODEOXYCHOLIC ACID [Concomitant]
     Active Substance: URSODIOL
     Route: 048
     Dates: start: 20160128
  23. ETOPOSIDE. [Suspect]
     Active Substance: ETOPOSIDE
     Indication: HISTIOCYTOSIS HAEMATOPHAGIC
     Route: 042
     Dates: start: 20160130, end: 20160203
  24. ETOPOSIDE. [Suspect]
     Active Substance: ETOPOSIDE
     Indication: ACUTE LYMPHOCYTIC LEUKAEMIA
     Route: 042
     Dates: start: 20160130, end: 20160203
  25. CYCLOPHOSPHAMIDE. [Concomitant]
     Active Substance: CYCLOPHOSPHAMIDE
     Indication: ACUTE LYMPHOCYTIC LEUKAEMIA RECURRENT
     Route: 042
     Dates: start: 20151207, end: 20151211
  26. MAXIPIME [Concomitant]
     Active Substance: CEFEPIME HYDROCHLORIDE
     Route: 042
     Dates: start: 20151230, end: 20160106
  27. LIXIANA [Concomitant]
     Active Substance: EDOXABAN TOSYLATE
     Route: 048
     Dates: start: 20160108, end: 20160126
  28. CUBICIN [Concomitant]
     Active Substance: DAPTOMYCIN
     Route: 042
     Dates: start: 20151221, end: 20151230
  29. ETOPOSIDE. [Suspect]
     Active Substance: ETOPOSIDE
     Indication: HISTIOCYTOSIS HAEMATOPHAGIC
     Route: 042
     Dates: start: 20151207, end: 20151211
  30. GRAN [Concomitant]
     Active Substance: FILGRASTIM
     Route: 058
     Dates: start: 20151212, end: 20160113
  31. MAXIPIME [Concomitant]
     Active Substance: CEFEPIME HYDROCHLORIDE
     Route: 042
     Dates: start: 20151216, end: 20151217
  32. ZYVOX [Concomitant]
     Active Substance: LINEZOLID
     Route: 042
     Dates: start: 20160309, end: 20160314
  33. FUNGUARD [Concomitant]
     Active Substance: MICAFUNGIN SODIUM
     Route: 042
     Dates: start: 20151230, end: 20160106
  34. EVOLTRA [Suspect]
     Active Substance: CLOFARABINE
     Indication: ACUTE LYMPHOCYTIC LEUKAEMIA
     Route: 042
     Dates: start: 20151207, end: 20151211
  35. MINOCYCLINE [Suspect]
     Active Substance: MINOCYCLINE\MINOCYCLINE HYDROCHLORIDE
     Route: 048
     Dates: start: 20160318
  36. PREDNISOLONE. [Suspect]
     Active Substance: PREDNISOLONE
     Indication: HISTIOCYTOSIS HAEMATOPHAGIC
     Route: 048
     Dates: start: 20160311
  37. ETOPOSIDE. [Suspect]
     Active Substance: ETOPOSIDE
     Indication: ACUTE LYMPHOCYTIC LEUKAEMIA
     Route: 042
     Dates: start: 20151207, end: 20151211
  38. ZOVIRAX [Concomitant]
     Active Substance: ACYCLOVIR
     Route: 042
  39. VANCOMYCIN [Concomitant]
     Active Substance: VANCOMYCIN
     Route: 042
     Dates: start: 20151224, end: 20151227
  40. OLOPATADINE. [Concomitant]
     Active Substance: OLOPATADINE
     Route: 048
     Dates: start: 20160113, end: 20160325
  41. CYCLOPHOSPHAMIDE. [Concomitant]
     Active Substance: CYCLOPHOSPHAMIDE
     Indication: ACUTE LYMPHOCYTIC LEUKAEMIA RECURRENT
     Route: 042
     Dates: start: 20160130, end: 20160203
  42. LEVOFLOXACIN. [Concomitant]
     Active Substance: LEVOFLOXACIN
     Route: 048
     Dates: start: 20151203, end: 20151217
  43. ITRIZOLE [Concomitant]
     Active Substance: ITRACONAZOLE
     Route: 048
     Dates: start: 20151204, end: 20151230
  44. FINIBAX [Concomitant]
     Active Substance: DORIPENEM MONOHYDRATE
     Route: 042
     Dates: start: 20160220, end: 20160312

REACTIONS (9)
  - Histiocytosis haematophagic [Fatal]
  - Pneumonia adenoviral [Fatal]
  - Systemic inflammatory response syndrome [Not Recovered/Not Resolved]
  - Platelet count decreased [Not Recovered/Not Resolved]
  - Anaemia [Not Recovered/Not Resolved]
  - Febrile neutropenia [Not Recovered/Not Resolved]
  - Adenoviral haemorrhagic cystitis [Not Recovered/Not Resolved]
  - Blood creatinine increased [Not Recovered/Not Resolved]
  - Blood bilirubin increased [Not Recovered/Not Resolved]

NARRATIVE: CASE EVENT DATE: 20151210
